FAERS Safety Report 13448460 (Version 1)
Quarter: 2017Q2

REPORT INFORMATION
  Report Type: Spontaneous
  Country: US (occurrence: US)
  Receive Date: 20170417
  Receipt Date: 20170417
  Transmission Date: 20170830
  Serious: No
  Sender: FDA-Public Use
  Company Number: US-009507513-1703USA014654

PATIENT
  Age: 30 Year
  Sex: Female
  Weight: 74.83 kg

DRUGS (2)
  1. NUVARING [Suspect]
     Active Substance: ETHINYL ESTRADIOL\ETONOGESTREL
     Indication: CERVICAL CYST
  2. NUVARING [Suspect]
     Active Substance: ETHINYL ESTRADIOL\ETONOGESTREL
     Indication: CONTRACEPTION
     Dosage: FREQUENCY: CONTINUOUSLY
     Route: 067
     Dates: start: 201611

REACTIONS (6)
  - Inappropriate schedule of drug administration [Unknown]
  - Device expulsion [Unknown]
  - Inadequate aseptic technique in use of product [Unknown]
  - Incorrect drug administration duration [Unknown]
  - Menorrhagia [Unknown]
  - Product use in unapproved indication [Unknown]

NARRATIVE: CASE EVENT DATE: 20170326
